FAERS Safety Report 21096718 (Version 2)
Quarter: 2022Q3

REPORT INFORMATION
  Report Type: Report from Study
  Country: PL (occurrence: None)
  Receive Date: 20220718
  Receipt Date: 20220801
  Transmission Date: 20221027
  Serious: Yes (Hospitalization)
  Sender: FDA-Public Use
  Company Number: PL-ROCHE-3135238

PATIENT
  Age: 75 Year
  Sex: Male
  Weight: 80 kg

DRUGS (11)
  1. FARICIMAB [Suspect]
     Active Substance: FARICIMAB
     Indication: Macular oedema
     Dosage: START DATE OF MOST RECENT DOSE OF STUDY DRUG ON 15/JUN/2022 3:10PM PRIOR TO AE
     Route: 050
     Dates: start: 20210915
  2. LINAGLIPTIN [Concomitant]
     Active Substance: LINAGLIPTIN
     Indication: Diabetes mellitus
     Route: 048
     Dates: start: 2018
  3. GLICLAZIDE [Concomitant]
     Active Substance: GLICLAZIDE
     Indication: Diabetes mellitus
     Route: 048
     Dates: start: 2001
  4. GLICLAZIDE [Concomitant]
     Active Substance: GLICLAZIDE
     Route: 048
     Dates: start: 2001
  5. AMLODIPINE BESYLATE [Concomitant]
     Active Substance: AMLODIPINE BESYLATE
     Indication: Hypertension
     Route: 048
     Dates: start: 2014
  6. LISINOPRIL [Concomitant]
     Active Substance: LISINOPRIL
     Indication: Hypertension
     Route: 048
     Dates: start: 2014
  7. INDAPAMIDE [Concomitant]
     Active Substance: INDAPAMIDE
     Indication: Hypertension
     Route: 048
     Dates: start: 2014
  8. ASPAGIN [Concomitant]
     Indication: Muscle spasms
     Route: 048
     Dates: start: 2006
  9. NEVANAC [Concomitant]
     Active Substance: NEPAFENAC
     Route: 047
     Dates: start: 20210831
  10. SULODEXIDE [Concomitant]
     Active Substance: SULODEXIDE
     Route: 048
     Dates: start: 20210831
  11. ACARD [Concomitant]
     Indication: Coronary artery disease
     Route: 048
     Dates: start: 2006

REACTIONS (1)
  - Pneumonia [Recovered/Resolved]

NARRATIVE: CASE EVENT DATE: 20220706
